FAERS Safety Report 6700794-6 (Version None)
Quarter: 2010Q2

REPORT INFORMATION
  Report Type: 
  Country: None (occurrence: None)
  Receive Date: 20100428
  Receipt Date: 20100416
  Transmission Date: 20101027
  Serious: No
  Sender: FDA-Public Use
  Company Number: US-ELI_LILLY_AND_COMPANY-US201003007736

PATIENT
  Sex: Male
  Weight: 97.052 kg

DRUGS (10)
  1. BYETTA [Suspect]
     Indication: TYPE 2 DIABETES MELLITUS
     Dosage: 5 UG, 2/D
     Route: 058
     Dates: start: 20100209, end: 20100329
  2. METOPROLOL TARTRATE [Concomitant]
     Dosage: 100 MG, DAILY (1/D)
  3. FUROSEMIDE [Concomitant]
     Dosage: 40 MG, DAILY (1/D)
  4. TRIAMTERENE AND HYDROCHLOROTHIAZIDE [Concomitant]
     Dosage: UNK, DAILY (1/D)
  5. SIMVASTATIN [Concomitant]
     Dosage: 20 MG, DAILY (1/D)
  6. POTASSIUM CHLORIDE [Concomitant]
     Dosage: 10 MEQ, DAILY (1/D)
  7. BENAZEPRIL HYDROCHLORIDE [Concomitant]
     Dosage: 20 MG, 2/D
  8. LEVOXYL [Concomitant]
     Dosage: 50 UG, DAILY (1/D)
  9. OMEPRAZOLE [Concomitant]
     Dosage: UNK, DAILY (1/D)
  10. GEMFIBROZIL [Concomitant]
     Dates: end: 20100201

REACTIONS (4)
  - APHONIA [None]
  - OROPHARYNGEAL PAIN [None]
  - POOR QUALITY SLEEP [None]
  - THROAT TIGHTNESS [None]
